FAERS Safety Report 6540371-3 (Version None)
Quarter: 2010Q1

REPORT INFORMATION
  Report Type: 
  Country: None (occurrence: None)
  Receive Date: 20100111
  Receipt Date: 20091224
  Transmission Date: 20100710
  Serious: Yes (Other)
  Sender: FDA-Public Use
  Company Number: 2010SP000534

PATIENT
  Age: 66 Year
  Sex: Male
  Weight: 90.7194 kg

DRUGS (1)
  1. CLARITIN [Suspect]
     Indication: NASOPHARYNGITIS
     Dosage: ;ONCE;PO
     Route: 048
     Dates: start: 20091223

REACTIONS (3)
  - LIP SWELLING [None]
  - OEDEMA PERIPHERAL [None]
  - SWELLING FACE [None]
